FAERS Safety Report 8996946 (Version 1)
Quarter: 2013Q1

REPORT INFORMATION
  Report Type: Report from Study
  Country: US (occurrence: US)
  Receive Date: 20130104
  Receipt Date: 20130104
  Transmission Date: 20140127
  Serious: No
  Sender: FDA-Public Use
  Company Number: US-009507513-1301USA000589

PATIENT
  Sex: 0
  Weight: 89.39 kg

DRUGS (1)
  1. IMPLANON [Suspect]
     Dosage: UNK
     Route: 059
     Dates: start: 20120117, end: 20130102

REACTIONS (2)
  - Nausea [Unknown]
  - Headache [Unknown]
